FAERS Safety Report 22182444 (Version 2)
Quarter: 2023Q2

REPORT INFORMATION
  Report Type: Spontaneous
  Country: US (occurrence: US)
  Receive Date: 20230406
  Receipt Date: 20230420
  Transmission Date: 20230722
  Serious: Yes (Hospitalization)
  Sender: FDA-Public Use
  Company Number: US-TEVA-2023-US-2872779

PATIENT
  Age: 62 Year
  Sex: Female

DRUGS (1)
  1. FLUOROURACIL [Suspect]
     Active Substance: FLUOROURACIL
     Indication: Adenocarcinoma of appendix
     Dosage: DOSE: BOLUS INFUSION OVER 46 HOURS. (ROUTE: INFUSION)
     Route: 050

REACTIONS (2)
  - Arteriospasm coronary [Unknown]
  - Acute coronary syndrome [Unknown]
